FAERS Safety Report 5506771-5 (Version None)
Quarter: 2007Q4

REPORT INFORMATION
  Report Type: 
  Country: None (occurrence: None)
  Receive Date: 20071105
  Receipt Date: 20071101
  Transmission Date: 20080405
  Serious: Yes (Death)
  Sender: FDA-Public Use
  Company Number: JP-WYE-H00994307

PATIENT
  Age: 86 Year

DRUGS (1)
  1. MYLOTARG [Suspect]
     Indication: ACUTE MYELOID LEUKAEMIA
     Dosage: NOT PROVIDED
     Route: 041
     Dates: start: 20070820, end: 20070820

REACTIONS (2)
  - DISSEMINATED INTRAVASCULAR COAGULATION [None]
  - INFECTION [None]
